FAERS Safety Report 10869670 (Version 1)
Quarter: 2015Q1

REPORT INFORMATION
  Report Type: Spontaneous
  Country: FR (occurrence: FR)
  Receive Date: 20150226
  Receipt Date: 20150226
  Transmission Date: 20150721
  Serious: Yes (Hospitalization)
  Sender: FDA-Public Use
  Company Number: FR-009507513-1502FRA010656

PATIENT
  Age: 65 Year
  Sex: Male

DRUGS (3)
  1. EMEND [Suspect]
     Active Substance: APREPITANT
     Dosage: TOTAL DAILY DOSE 125 MG AT DAY 2 THEN 80 MG AT DAY 1 AND DAY 0
     Route: 048
     Dates: start: 20150208, end: 20150210
  2. MELPHALAN [Suspect]
     Active Substance: MELPHALAN
     Dosage: 360 MG, QD
     Route: 042
     Dates: start: 20150209, end: 20150209
  3. ZOPHREN (ONDANSETRON HYDROCHLORIDE) [Suspect]
     Active Substance: ONDANSETRON HYDROCHLORIDE
     Dosage: 8 MG, BID
     Route: 041
     Dates: start: 20150209, end: 20150209

REACTIONS (1)
  - Temporal lobe epilepsy [Recovered/Resolved]

NARRATIVE: CASE EVENT DATE: 20150210
